FAERS Safety Report 13937596 (Version 3)
Quarter: 2018Q1

REPORT INFORMATION
  Report Type: Spontaneous
  Country: IT (occurrence: IT)
  Receive Date: 20170905
  Receipt Date: 20180223
  Transmission Date: 20180508
  Serious: Yes (Hospitalization, Other)
  Sender: FDA-Public Use
  Company Number: IT-GILEAD-2017-0290943

PATIENT
  Age: 58 Year
  Sex: Male
  Weight: 64 kg

DRUGS (2)
  1. SOVALDI [Suspect]
     Active Substance: SOFOSBUVIR
     Indication: HEPATITIS C
     Dosage: 400 MG, QD
     Route: 048
     Dates: start: 20150630, end: 20151213
  2. DAKLINZA [Suspect]
     Active Substance: DACLATASVIR
     Indication: HEPATITIS C
     Dosage: 60 MG, QD
     Route: 048
     Dates: start: 20150630, end: 20151213

REACTIONS (1)
  - Hepatocellular carcinoma [Recovered/Resolved]

NARRATIVE: CASE EVENT DATE: 20160329
